FAERS Safety Report 13450366 (Version 1)
Quarter: 2017Q2

REPORT INFORMATION
  Report Type: Spontaneous
  Country: GB (occurrence: GB)
  Receive Date: 20170417
  Receipt Date: 20170417
  Transmission Date: 20170830
  Serious: Yes (Hospitalization)
  Sender: FDA-Public Use
  Company Number: GB-MYLANLABS-2017M1022677

PATIENT

DRUGS (2)
  1. WARFARIN [Concomitant]
     Active Substance: WARFARIN
     Indication: PRODUCT USED FOR UNKNOWN INDICATION
  2. CLOZARIL [Suspect]
     Active Substance: CLOZAPINE
     Indication: SCHIZOPHRENIA
     Dosage: UNK
     Route: 048
     Dates: start: 20111115

REACTIONS (6)
  - Circulatory collapse [Unknown]
  - Contusion [Unknown]
  - Metabolic acidosis [Unknown]
  - Therapy cessation [Recovered/Resolved]
  - Somnolence [Unknown]
  - Pneumonia [Unknown]

NARRATIVE: CASE EVENT DATE: 20170405
